FAERS Safety Report 25778770 (Version 1)
Quarter: 2025Q3

REPORT INFORMATION
  Report Type: Spontaneous
  Country: US (occurrence: None)
  Receive Date: 20250908
  Receipt Date: 20250908
  Transmission Date: 20251020
  Serious: Yes (Death)
  Sender: FDA-CTU
  Company Number: None

PATIENT
  Age: 75 Year
  Sex: Male

DRUGS (12)
  1. ETRAVIRINE [Suspect]
     Active Substance: ETRAVIRINE
     Indication: HIV infection
     Dosage: FREQUENCY : TWICE A DAY;?
     Route: 048
     Dates: start: 20210828
  2. RITONAVIR [Suspect]
     Active Substance: RITONAVIR
     Indication: HIV infection
     Dosage: FREQUENCY : TWICE A DAY;?
     Route: 048
     Dates: start: 20210314
  3. DARUNAVIR [Concomitant]
     Active Substance: DARUNAVIR
  4. GABAPENTIN [Concomitant]
     Active Substance: GABAPENTIN
  5. LEVOFLOXACIN [Concomitant]
     Active Substance: LEVOFLOXACIN
  6. EZETIMIBE [Concomitant]
     Active Substance: EZETIMIBE
  7. CLOPIDOGREL [Concomitant]
     Active Substance: CLOPIDOGREL BISULFATE
  8. ALPRAZOLAM [Concomitant]
     Active Substance: ALPRAZOLAM
  9. ALBUTEROL [Concomitant]
     Active Substance: ALBUTEROL
  10. VITAMIN D2 [Concomitant]
     Active Substance: ERGOCALCIFEROL
  11. DESCOVY [Concomitant]
     Active Substance: EMTRICITABINE\TENOFOVIR ALAFENAMIDE FUMARATE
  12. PANTOPRAZOLE [Concomitant]
     Active Substance: PANTOPRAZOLE

REACTIONS (1)
  - General physical health deterioration [None]

NARRATIVE: CASE EVENT DATE: 20250906
